FAERS Safety Report 18442243 (Version 1)
Quarter: 2020Q4

REPORT INFORMATION
  Report Type: Spontaneous
  Country: US (occurrence: US)
  Receive Date: 20201029
  Receipt Date: 20201029
  Transmission Date: 20210114
  Serious: No
  Sender: FDA-Public Use
  Company Number: US-UNICHEM PHARMACEUTICALS (USA) INC-UCM202004-000456

PATIENT
  Age: 56 Year
  Sex: Female
  Weight: 68.03 kg

DRUGS (5)
  1. LAMOTRIGINE. [Suspect]
     Active Substance: LAMOTRIGINE
     Dosage: BEFORE THE PATIENT WAS TAKING ONCE A DAY BUT NOW AS SUGGESTED BY HER PHYSICIAN SHE WAS TAKING TWICE
  2. ADDERALL [Concomitant]
     Active Substance: AMPHETAMINE ASPARTATE\AMPHETAMINE SULFATE\DEXTROAMPHETAMINE SACCHARATE\DEXTROAMPHETAMINE SULFATE
     Indication: PRODUCT USED FOR UNKNOWN INDICATION
  3. CEPLEX [Concomitant]
     Indication: SEBACEOUS GLAND INFECTION
     Dosage: 1000 MG AT MORNING AND 1000 MG AT EVENING.
  4. SUBOXEN [Concomitant]
     Indication: SPINAL STENOSIS
  5. LAMOTRIGINE. [Suspect]
     Active Substance: LAMOTRIGINE
     Indication: BIPOLAR DISORDER
     Dosage: BEFORE THE PATIENT WAS TAKING ONCE A DAY BUT NOW AS SUGGESTED BY HER PHYSICIAN SHE WAS TAKING TWICE

REACTIONS (1)
  - Visual impairment [Unknown]
